FAERS Safety Report 8885802 (Version 5)
Quarter: 2016Q4

REPORT INFORMATION
  Report Type: Spontaneous
  Country: DK (occurrence: DK)
  Receive Date: 20121102
  Receipt Date: 20161021
  Transmission Date: 20170207
  Serious: Yes (Hospitalization, Disabling)
  Sender: FDA-Public Use
  Company Number: DK-PFIZER INC-2012270528

PATIENT
  Age: 49 Year
  Sex: Male
  Weight: 128 kg

DRUGS (6)
  1. MIRTAZAPINE. [Concomitant]
     Active Substance: MIRTAZAPINE
     Indication: DEPRESSION
     Dosage: 30 MG, 1X/DAY
     Route: 048
     Dates: start: 20110503
  2. AMITRIPTYLINE ^DAK^ [Suspect]
     Active Substance: AMITRIPTYLINE
     Indication: PAIN
     Dosage: 10 MG, 1X/DAY
     Route: 048
     Dates: start: 201103, end: 20110711
  3. GABAPENTIN. [Concomitant]
     Active Substance: GABAPENTIN
     Dosage: 600-900 MG DAILY
     Route: 048
     Dates: start: 20110526, end: 20110711
  4. LYRICA [Suspect]
     Active Substance: PREGABALIN
     Indication: NEURALGIA
     Dosage: 150 MG, UNK
     Route: 048
     Dates: start: 201105, end: 20110823
  5. AMITRIPTYLINE ^DAK^ [Suspect]
     Active Substance: AMITRIPTYLINE
     Dosage: 30 MG, 1X/DAY
     Dates: end: 201109
  6. NORITREN [Suspect]
     Active Substance: NORTRIPTYLINE HYDROCHLORIDE
     Indication: PAIN
     Dosage: 10-25 MG, 2 TIMES DAILY
     Route: 048
     Dates: start: 20110526, end: 20110823

REACTIONS (8)
  - Chest pain [Recovered/Resolved with Sequelae]
  - Dyspnoea [Recovered/Resolved with Sequelae]
  - Emotional distress [Unknown]
  - Bundle branch block left [Recovered/Resolved]
  - Tachycardia [Recovered/Resolved]
  - Pain [Unknown]
  - Ventricular dyskinesia [Not Recovered/Not Resolved]
  - Ejection fraction decreased [Not Recovered/Not Resolved]

NARRATIVE: CASE EVENT DATE: 20110609
